FAERS Safety Report 4493093-7 (Version None)
Quarter: 2004Q4

REPORT INFORMATION
  Report Type: 
  Country: None (occurrence: None)
  Receive Date: 20041104
  Receipt Date: 20041027
  Transmission Date: 20050328
  Serious: Yes (Hospitalization)
  Sender: FDA-Public Use
  Company Number: US-GLAXOSMITHKLINE-A0531546A

PATIENT
  Age: 36 Year
  Sex: Female
  Weight: 44.1 kg

DRUGS (3)
  1. WELLBUTRIN [Suspect]
     Indication: DEPRESSION
     Dates: start: 20030101
  2. WELLBUTRIN [Suspect]
     Route: 048
     Dates: end: 20040902
  3. ATIVAN [Concomitant]

REACTIONS (11)
  - ABDOMINAL PAIN UPPER [None]
  - CONVULSION [None]
  - GASTRIC DISORDER [None]
  - GASTRITIS [None]
  - HAEMATEMESIS [None]
  - MEDICATION ERROR [None]
  - MIGRAINE [None]
  - RECTAL HAEMORRHAGE [None]
  - REGURGITATION OF FOOD [None]
  - VOMITING [None]
  - WEIGHT DECREASED [None]
